FAERS Safety Report 10004721 (Version 1)
Quarter: 2014Q1

REPORT INFORMATION
  Report Type: Report from Study
  Country: US (occurrence: US)
  Receive Date: 20140312
  Receipt Date: 20140312
  Transmission Date: 20141002
  Serious: Yes (Hospitalization)
  Sender: FDA-Public Use
  Company Number: US-GLAXOSMITHKLINE-A1063941A

PATIENT
  Age: 56 Year
  Sex: Male
  Weight: 91.4 kg

DRUGS (8)
  1. ZOFRAN [Suspect]
  2. NEURONTIN [Suspect]
  3. MORPHINE SULFATE [Suspect]
  4. INVESTIGATIONAL DRUG [Suspect]
     Indication: OESOPHAGEAL CARCINOMA
     Dosage: 125MG PER DAY
     Route: 048
     Dates: start: 20130614, end: 20130628
  5. FENTANYL [Suspect]
     Indication: PAIN
     Route: 062
  6. GABAPENTIN [Concomitant]
  7. ATENIX [Concomitant]
  8. METHADONE [Concomitant]

REACTIONS (3)
  - Mental status changes [Unknown]
  - Dehydration [Unknown]
  - Anaemia [Unknown]
